FAERS Safety Report 12466521 (Version 9)
Quarter: 2016Q3

REPORT INFORMATION
  Report Type: Report from Study
  Country: RU (occurrence: RU)
  Receive Date: 20160615
  Receipt Date: 20160913
  Transmission Date: 20161109
  Serious: Yes (Hospitalization, Disabling, Other)
  Sender: FDA-Public Use
  Company Number: RU-ROCHE-1770902

PATIENT
  Age: 68 Year
  Sex: Male
  Weight: 84.5 kg

DRUGS (33)
  1. OBINUTUZUMAB [Suspect]
     Active Substance: OBINUTUZUMAB
     Indication: CHRONIC LYMPHOCYTIC LEUKAEMIA
     Dosage: START TIME: 15:30 AND END TIME: 20:30.THE DATE OF LAST DOSE PRIOR TO SAE: 22/DEC/2014
     Route: 042
     Dates: start: 20140806, end: 20140806
  2. BENDAMUSTINE [Suspect]
     Active Substance: BENDAMUSTINE
     Dosage: START TIME: 12:00 AND END TIME: 13:00.
     Route: 042
     Dates: start: 20140808, end: 20140808
  3. OBINUTUZUMAB [Suspect]
     Active Substance: OBINUTUZUMAB
     Dosage: START TIME: 11:30 AND END TIME: 14:15.
     Route: 042
     Dates: start: 20140813, end: 20140813
  4. BENDAMUSTINE [Suspect]
     Active Substance: BENDAMUSTINE
     Dosage: START TIME: 11:00 AND END TIME: 12:00.
     Route: 042
     Dates: start: 20141007, end: 20141007
  5. BENDAMUSTINE [Suspect]
     Active Substance: BENDAMUSTINE
     Dosage: START TIME: 13:15 AND END TIME: 14:15
     Route: 042
     Dates: start: 20141222, end: 20141222
  6. OBINUTUZUMAB [Suspect]
     Active Substance: OBINUTUZUMAB
     Dosage: START TIME: 12:30 AND STOP TIME: 15:45.
     Route: 042
     Dates: start: 20141030, end: 20141030
  7. OBINUTUZUMAB [Suspect]
     Active Substance: OBINUTUZUMAB
     Dosage: START TIME: 10:00 AND END TIME: 13:15.
     Route: 042
     Dates: start: 20141126, end: 20141126
  8. BENDAMUSTINE [Suspect]
     Active Substance: BENDAMUSTINE
     Dosage: START TIME: 15:15 AND STOP DATE: 16:15.
     Route: 042
     Dates: start: 20140908, end: 20140908
  9. BENDAMUSTINE [Suspect]
     Active Substance: BENDAMUSTINE
     Dosage: START TIME: 16:45 AND END TIME: 17:45
     Route: 042
     Dates: start: 20141030, end: 20141030
  10. PARACETAMOL [Concomitant]
     Active Substance: ACETAMINOPHEN
     Dosage: SINGLE DOSE
     Route: 048
     Dates: start: 20140806, end: 20140806
  11. BENDAMUSTINE [Suspect]
     Active Substance: BENDAMUSTINE
     Indication: CHRONIC LYMPHOCYTIC LEUKAEMIA
     Dosage: DOSE ALSO MENTIONED AS 147 MG. START TIME: 16:30 AND END TIME:17:30. THE DATE OF LAST DOSE PRIOR TO
     Route: 042
     Dates: start: 20140807, end: 20140807
  12. BENDAMUSTINE [Suspect]
     Active Substance: BENDAMUSTINE
     Dosage: START TIME: 13:00 AND STOP TIME: 14:00.
     Route: 042
     Dates: start: 20141031, end: 20141031
  13. OBINUTUZUMAB [Suspect]
     Active Substance: OBINUTUZUMAB
     Dosage: START TIME: 11:00 AND END TIME: 14:15.
     Route: 042
     Dates: start: 20140828, end: 20140828
  14. OBINUTUZUMAB [Suspect]
     Active Substance: OBINUTUZUMAB
     Dosage: START TIME: 11:00 AND STOP TIME: 14:15.
     Route: 042
     Dates: start: 20141006, end: 20141006
  15. BENDAMUSTINE [Suspect]
     Active Substance: BENDAMUSTINE
     Dosage: START TIME: 10:00 AND END TIME: 11:00.
     Route: 042
     Dates: start: 20140909, end: 20140909
  16. BENDAMUSTINE [Suspect]
     Active Substance: BENDAMUSTINE
     Dosage: START TIME: 15:15 AND END TIME: 16:15.
     Route: 042
     Dates: start: 20141006, end: 20141006
  17. BENDAMUSTINE [Suspect]
     Active Substance: BENDAMUSTINE
     Dosage: START TIME: 11:00 AND END TIME: 12:00
     Route: 042
     Dates: start: 20141127, end: 20141127
  18. PREDNISOLONE. [Concomitant]
     Active Substance: PREDNISOLONE
     Dosage: SINGLE DOSE
     Route: 042
     Dates: start: 20140807, end: 20140807
  19. PREDNISOLONE. [Concomitant]
     Active Substance: PREDNISOLONE
     Dosage: SINGLE DOSE
     Route: 042
     Dates: start: 20140813, end: 20140813
  20. PARACETAMOL [Concomitant]
     Active Substance: ACETAMINOPHEN
     Indication: PROPHYLAXIS
     Dosage: SINGLE DOSE
     Route: 042
     Dates: start: 20140806, end: 20140806
  21. PARACETAMOL [Concomitant]
     Active Substance: ACETAMINOPHEN
     Dosage: SINGLE DOSE
     Route: 048
     Dates: start: 20140813, end: 20140813
  22. OBINUTUZUMAB [Suspect]
     Active Substance: OBINUTUZUMAB
     Dosage: START TIME: 11:00 AND END TIME: 15:30.
     Route: 042
     Dates: start: 20140807, end: 20140807
  23. OBINUTUZUMAB [Suspect]
     Active Substance: OBINUTUZUMAB
     Dosage: START TIME: 11:00 AND END TIME: 14:15.
     Route: 042
     Dates: start: 20140908, end: 20140908
  24. OBINUTUZUMAB [Suspect]
     Active Substance: OBINUTUZUMAB
     Dosage: START TIME: 09:00 AND END TIME:12:15
     Route: 042
     Dates: start: 20141222, end: 20141222
  25. BENDAMUSTINE [Suspect]
     Active Substance: BENDAMUSTINE
     Dosage: START TIME:12:00 AND STOP TIME: 13:00
     Route: 042
     Dates: start: 20141223, end: 20141223
  26. PREDNISOLONE. [Concomitant]
     Active Substance: PREDNISOLONE
     Indication: PROPHYLAXIS
     Dosage: SINGLE DOSE
     Route: 042
     Dates: start: 20140806, end: 20140806
  27. DIPHENHYDRAMINE. [Concomitant]
     Active Substance: DIPHENHYDRAMINE
     Indication: PROPHYLAXIS
     Dosage: SINGLE DOSE
     Route: 030
     Dates: start: 20140806, end: 20140806
  28. DIPHENHYDRAMINE. [Concomitant]
     Active Substance: DIPHENHYDRAMINE
     Dosage: SINGLE DOSE
     Route: 030
     Dates: start: 20140807, end: 20140807
  29. DIPHENHYDRAMINE. [Concomitant]
     Active Substance: DIPHENHYDRAMINE
     Route: 030
     Dates: start: 20140813, end: 20140813
  30. BENDAMUSTINE [Suspect]
     Active Substance: BENDAMUSTINE
     Dosage: STAR TIME: 14:15 AND END TIME: 15:15.
     Route: 042
     Dates: start: 20141126, end: 20141126
  31. RITUXIMAB [Suspect]
     Active Substance: RITUXIMAB
     Indication: CHRONIC LYMPHOCYTIC LEUKAEMIA
     Route: 065
     Dates: start: 20160511, end: 20160513
  32. BENDAMUSTINE [Suspect]
     Active Substance: BENDAMUSTINE
     Indication: CHRONIC LYMPHOCYTIC LEUKAEMIA
     Dosage: DAY 2 AND 3 OF NEW THERAPY
     Route: 042
     Dates: start: 20160512, end: 20160513
  33. PARACETAMOL [Concomitant]
     Active Substance: ACETAMINOPHEN
     Dosage: SINGLE DOSE
     Route: 048
     Dates: start: 20140807, end: 20140807

REACTIONS (2)
  - Febrile neutropenia [Unknown]
  - Neutropenia [Recovered/Resolved]

NARRATIVE: CASE EVENT DATE: 20140818
